FAERS Safety Report 12227779 (Version 24)
Quarter: 2018Q4

REPORT INFORMATION
  Report Type: Report from Study
  Country: CA (occurrence: CA)
  Receive Date: 20160401
  Receipt Date: 20181024
  Transmission Date: 20190204
  Serious: Yes (Hospitalization, Other)
  Sender: FDA-Public Use
  Company Number: CA-ROCHE-1417350

PATIENT
  Age: 62 Year
  Sex: Male
  Weight: 76 kg

DRUGS (14)
  1. SOLU-MEDROL [Concomitant]
     Active Substance: METHYLPREDNISOLONE SODIUM SUCCINATE
     Indication: PREMEDICATION
     Route: 042
     Dates: start: 20101124, end: 20140605
  2. PLAQUENIL [Concomitant]
     Active Substance: HYDROXYCHLOROQUINE SULFATE
  3. ACTEMRA [Suspect]
     Active Substance: TOCILIZUMAB
     Route: 042
     Dates: start: 20150122
  4. BENADRYL [Concomitant]
     Active Substance: DIPHENHYDRAMINE HYDROCHLORIDE
     Indication: PREMEDICATION
     Route: 048
     Dates: start: 20101124, end: 20140605
  5. PREDNISONE. [Concomitant]
     Active Substance: PREDNISONE
  6. ARAVA [Concomitant]
     Active Substance: LEFLUNOMIDE
  7. TYLENOL [Concomitant]
     Active Substance: ACETAMINOPHEN
     Indication: PREMEDICATION
     Route: 048
     Dates: start: 20101124, end: 20140605
  8. APO-HYDROXYQUINE [Concomitant]
     Active Substance: HYDROXYCHLOROQUINE SULFATE
  9. ACTEMRA [Suspect]
     Active Substance: TOCILIZUMAB
     Indication: RHEUMATOID ARTHRITIS
     Route: 042
     Dates: start: 20140715
  10. ACTONEL [Concomitant]
     Active Substance: RISEDRONATE SODIUM
  11. SULFASALAZINE. [Concomitant]
     Active Substance: SULFASALAZINE
  12. ACTEMRA [Suspect]
     Active Substance: TOCILIZUMAB
     Route: 042
     Dates: start: 20150722
  13. RITUXAN [Suspect]
     Active Substance: RITUXIMAB
     Indication: RHEUMATOID ARTHRITIS
     Route: 042
     Dates: start: 20101124, end: 20140605
  14. CELEBREX [Concomitant]
     Active Substance: CELECOXIB

REACTIONS (22)
  - Skin cancer [Unknown]
  - Hypotension [Unknown]
  - Cellulitis [Recovering/Resolving]
  - Haematological malignancy [Unknown]
  - Hypertension [Not Recovered/Not Resolved]
  - Drug ineffective [Unknown]
  - Weight decreased [Unknown]
  - Blood cholesterol increased [Not Recovered/Not Resolved]
  - Heart rate decreased [Unknown]
  - Haematochezia [Recovered/Resolved]
  - Anaemia [Unknown]
  - Heart rate decreased [Unknown]
  - Blood pressure systolic increased [Unknown]
  - Malignant neoplasm of spinal cord [Unknown]
  - Pain in extremity [Unknown]
  - Body temperature decreased [Unknown]
  - Herpes zoster [Recovered/Resolved]
  - Musculoskeletal disorder [Recovering/Resolving]
  - Blood pressure increased [Unknown]
  - Malignant neoplasm of eye [Not Recovered/Not Resolved]
  - Pneumonia [Recovered/Resolved]
  - Blood pressure diastolic decreased [Unknown]

NARRATIVE: CASE EVENT DATE: 20150319
